FAERS Safety Report 21039468 (Version 6)
Quarter: 2022Q3

REPORT INFORMATION
  Report Type: Report from Study
  Country: US (occurrence: None)
  Receive Date: 20220704
  Receipt Date: 20220810
  Transmission Date: 20221026
  Serious: Yes (Hospitalization)
  Sender: FDA-Public Use
  Company Number: US-ROCHE-3111137

PATIENT
  Age: 64 Year
  Sex: Female
  Weight: 74.8 kg

DRUGS (11)
  1. CEVOSTAMAB [Suspect]
     Active Substance: CEVOSTAMAB
     Indication: Plasma cell myeloma
     Dosage: DOSE LAST STUDY DRUG ADMIN PRIOR AE IS 252 MG?START DATE OF MOST RECENT DOSE OF STUDY IS 31/MAY/2022
     Route: 042
     Dates: start: 20220524
  2. TOCILIZUMAB [Suspect]
     Active Substance: TOCILIZUMAB
     Indication: Plasma cell myeloma
     Dosage: START DATE OF MOST RECENT DOSE OF STUDY DRUG 04/JUN/2022, 610 MG
     Route: 042
     Dates: start: 20220604
  3. LIDOCAINE [Concomitant]
     Active Substance: LIDOCAINE
     Route: 061
     Dates: start: 20220413, end: 20220512
  4. MIRALAX [Concomitant]
     Active Substance: POLYETHYLENE GLYCOL 3350
     Indication: Constipation
     Dosage: 1 OTHER
     Route: 048
     Dates: start: 20210526, end: 20220513
  5. ONDANSETRON [Concomitant]
     Active Substance: ONDANSETRON
     Indication: Nausea
     Route: 048
     Dates: start: 20220413, end: 20220512
  6. ONDANSETRON [Concomitant]
     Active Substance: ONDANSETRON
     Indication: Vomiting
  7. VITAMIN D3 [Concomitant]
     Active Substance: CHOLECALCIFEROL
     Route: 048
     Dates: start: 20171012
  8. CYCLOPHOSPHAMIDE [Concomitant]
     Active Substance: CYCLOPHOSPHAMIDE
     Route: 065
     Dates: start: 20210515, end: 20220522
  9. ACETAMINOPHEN [Concomitant]
     Active Substance: ACETAMINOPHEN
     Indication: Pyrexia
     Route: 042
     Dates: start: 20220603, end: 20220604
  10. ACETAMINOPHEN [Concomitant]
     Active Substance: ACETAMINOPHEN
     Indication: Tachycardia
     Route: 042
     Dates: start: 20220602, end: 20220604
  11. LEVETIRACETAM [Concomitant]
     Active Substance: LEVETIRACETAM
     Indication: Confusional state
     Route: 042
     Dates: start: 20220622, end: 20220711

REACTIONS (3)
  - Confusional state [Recovered/Resolved]
  - Device related infection [Recovered/Resolved]
  - Cytokine release syndrome [Recovered/Resolved]

NARRATIVE: CASE EVENT DATE: 20220602
